FAERS Safety Report 11592242 (Version 1)
Quarter: 2015Q4

REPORT INFORMATION
  Report Type: Spontaneous
  Country: DE (occurrence: None)
  Receive Date: 20151001
  Receipt Date: 20151001
  Transmission Date: 20160304
  Serious: Yes (Other)
  Sender: FDA-Public Use
  Company Number: HRA-CDB20150305

PATIENT
  Sex: Female

DRUGS (2)
  1. ELLAONE [Suspect]
     Active Substance: ULIPRISTAL ACETATE
     Indication: CONTRACEPTION
     Dates: start: 20150806
  2. NUVARING (ETHINYLESTRADIOL) [Concomitant]

REACTIONS (3)
  - Palpitations [None]
  - Tremor [None]
  - Syncope [None]

NARRATIVE: CASE EVENT DATE: 20150806
